FAERS Safety Report 6093498-7 (Version None)
Quarter: 2009Q1

REPORT INFORMATION
  Report Type: 
  Country: None (occurrence: None)
  Receive Date: 20090226
  Receipt Date: 20090212
  Transmission Date: 20090719
  Serious: Yes (Other)
  Sender: FDA-Public Use
  Company Number: DE-BAUSCH-2009BL000645

PATIENT
  Sex: Female

DRUGS (1)
  1. BETAMANN 0.3% AUGENTROPFEN [Suspect]
     Indication: GLAUCOMA
     Route: 047
     Dates: start: 20060101, end: 20080101

REACTIONS (3)
  - DACRYOSTENOSIS ACQUIRED [None]
  - LACRIMATION INCREASED [None]
  - REACTION TO PRESERVATIVES [None]
